FAERS Safety Report 8912656 (Version 1)
Quarter: 2012Q4

REPORT INFORMATION
  Report Type: 
  Country: IE (occurrence: IE)
  Receive Date: 20121116
  Receipt Date: 20121116
  Transmission Date: 20130627
  Serious: Yes (Other)
  Sender: FDA-Public Use
  Company Number: IE-BRISTOL-MYERS SQUIBB COMPANY-17109786

PATIENT
  Age: 10 Year
  Sex: Male

DRUGS (3)
  1. ABILIFY [Suspect]
     Indication: IRRITABILITY
     Dosage: Strength:5mg
     Route: 048
     Dates: start: 20120720, end: 20121019
  2. ABILIFY [Suspect]
     Indication: AGGRESSION
     Dosage: Strength:5mg
     Route: 048
     Dates: start: 20120720, end: 20121019
  3. MELATONIN [Concomitant]
     Indication: SLEEP DISORDER
     Dosage: 1 df = 4-8mg
     Route: 048
     Dates: start: 201207, end: 201210

REACTIONS (2)
  - Onychomadesis [Not Recovered/Not Resolved]
  - Onychalgia [Not Recovered/Not Resolved]
